FAERS Safety Report 7730841-4 (Version None)
Quarter: 2011Q3

REPORT INFORMATION
  Report Type: 
  Country: None (occurrence: None)
  Receive Date: 20110906
  Receipt Date: 20110824
  Transmission Date: 20111222
  Serious: Yes (Death, Hospitalization)
  Sender: FDA-Public Use
  Company Number: JP-ACTELION-A-CH2011-48964

PATIENT
  Sex: Female

DRUGS (10)
  1. PRAVASTATIN SODIUM [Concomitant]
  2. ALENDRONATE SODIUM [Concomitant]
  3. BERAPROST SODIUM [Concomitant]
  4. WARFARIN SODIUM [Concomitant]
  5. TEPRENONE [Concomitant]
  6. ISOSORBIDE DINITRATE [Concomitant]
  7. ALFACALCIDOL [Concomitant]
  8. TRACLEER [Suspect]
     Indication: PULMONARY ARTERIAL HYPERTENSION
     Dosage: 125 MG, BID
     Route: 048
     Dates: start: 20050713, end: 20070303
  9. PREDNISOLONE [Concomitant]
  10. OXYGEN [Concomitant]

REACTIONS (13)
  - BLOOD SMEAR TEST ABNORMAL [None]
  - HAEMORRHAGIC DISORDER [None]
  - PULMONARY ARTERIAL HYPERTENSION [None]
  - PLATELET COUNT DECREASED [None]
  - CONDITION AGGRAVATED [None]
  - HEADACHE [None]
  - HAEMORRHAGIC DIATHESIS [None]
  - PYREXIA [None]
  - ASPIRATION BONE MARROW [None]
  - CARDIAC HYPERTROPHY [None]
  - HISTIOCYTOSIS HAEMATOPHAGIC [None]
  - PULMONARY ALVEOLAR HAEMORRHAGE [None]
  - CHILLS [None]
